FAERS Safety Report 16017558 (Version 1)
Quarter: 2019Q1

REPORT INFORMATION
  Report Type: Spontaneous
  Country: US (occurrence: US)
  Receive Date: 20190131
  Receipt Date: 20190131
  Transmission Date: 20190418
  Serious: No
  Sender: FDA-Public Use
  Company Number: None

PATIENT
  Age: 32 Year
  Sex: Male
  Weight: 90.72 kg

DRUGS (1)
  1. SEVOFLURANE. [Suspect]
     Active Substance: SEVOFLURANE
     Dates: start: 20181107, end: 20181107

REACTIONS (4)
  - Hyperthermia malignant [None]
  - Pyrexia [None]
  - PCO2 increased [None]
  - Acidosis [None]

NARRATIVE: CASE EVENT DATE: 20181107
